FAERS Safety Report 15855013 (Version 1)
Quarter: 2019Q1

REPORT INFORMATION
  Report Type: Spontaneous
  Country: CA (occurrence: CA)
  Receive Date: 20190122
  Receipt Date: 20190122
  Transmission Date: 20190417
  Serious: Yes (Hospitalization)
  Sender: FDA-Public Use
  Company Number: CA-MYLANLABS-2019M1004820

PATIENT
  Age: 54 Year
  Sex: Male

DRUGS (5)
  1. FABRAZYME [Concomitant]
     Active Substance: AGALSIDASE BETA
     Dosage: UNK
     Route: 065
  2. AMIODARONE [Suspect]
     Active Substance: AMIODARONE
     Indication: ATRIAL FIBRILLATION
     Dosage: LOADING ORAL DOSE, FOLLOWED BY MAINTENANCE THERAPY
     Route: 048
  3. FABRAZYME [Concomitant]
     Active Substance: AGALSIDASE BETA
     Indication: FABRY^S DISEASE
     Dosage: THEREAFTER, 0.5 MG/KG
     Route: 065
  4. REPLAGAL [Concomitant]
     Active Substance: AGALSIDASE ALFA
     Indication: FABRY^S DISEASE
     Route: 065
  5. FABRAZYME [Concomitant]
     Active Substance: AGALSIDASE BETA
     Dosage: FOR A 3-MONTH PERIOD. FOLLOWING A BRIEF CESSATION WAS SWITCHED BACK
     Route: 065

REACTIONS (6)
  - Glomerular filtration rate decreased [Recovering/Resolving]
  - Heart valve incompetence [Recovering/Resolving]
  - Mitral valve disease [Recovering/Resolving]
  - Toxicity to various agents [Recovering/Resolving]
  - Ejection fraction decreased [Recovered/Resolved]
  - Cardiac failure acute [Recovered/Resolved]
